FAERS Safety Report 8397447 (Version 2)
Quarter: 2013Q2

REPORT INFORMATION
  Report Type: Spontaneous
  Country: US (occurrence: None)
  Receive Date: 20111227
  Receipt Date: 20120426
  Transmission Date: 20140414
  Serious: Yes (Other)
  Sender: FDA-Public Use
  Company Number: PHEH2011US010106

PATIENT
  Age: 39 Year
  Sex: Female
  Weight: 120 kg

DRUGS (1)
  1. GILENYA [Suspect]
     Dosage: 0.5 MG MG, QD, ORAL
     Route: 048
     Dates: start: 20111114

REACTIONS (2)
  - BURNING SENSATION [None]
  - INFLUENZA LIKE ILLNESS [None]
